FAERS Safety Report 21090950 (Version 1)
Quarter: 2022Q3

REPORT INFORMATION
  Report Type: Spontaneous
  Country: FR (occurrence: FR)
  Receive Date: 20220716
  Receipt Date: 20220716
  Transmission Date: 20221027
  Serious: Yes (Hospitalization)
  Sender: FDA-Public Use
  Company Number: None

PATIENT
  Age: 75 Year
  Sex: Male

DRUGS (5)
  1. ALPRAZOLAM [Suspect]
     Active Substance: ALPRAZOLAM
     Indication: Product used for unknown indication
     Dosage: UNIT DOSE: 0.5 MG, FREQUENCY TIME : 8 HRS, DURATION : 12 DAYS
     Dates: start: 20210520, end: 20210601
  2. LEVOFLOXACIN [Suspect]
     Active Substance: LEVOFLOXACIN
     Indication: Prophylaxis
     Dosage: UNIT DOSE: 500 MG, FREQUENCY TIME : 1 DAY, DURATION : 10 DAYS
     Dates: start: 20210520, end: 20210530
  3. POSACONAZOLE [Suspect]
     Active Substance: POSACONAZOLE
     Indication: Prophylaxis
     Dosage: UNIT DOSE: 300 MG, FREQUENCY TIME : 1 DAY, DURATION : 10 DAYS
     Dates: start: 20210520, end: 20210530
  4. PIPERACILLIN SODIUM\TAZOBACTAM SODIUM [Suspect]
     Active Substance: PIPERACILLIN SODIUM\TAZOBACTAM SODIUM
     Indication: Febrile neutropenia
     Dosage: UNIT DOSE: 4 GM, FREQUENCY TIME : 8 HRS, DURATION : 6 DAYS
     Dates: start: 20210522, end: 20210528
  5. VALACYCLOVIR HYDROCHLORIDE [Suspect]
     Active Substance: VALACYCLOVIR HYDROCHLORIDE
     Indication: Prophylaxis
     Dosage: UNIT DOSE: 500 MG, FREQUENCY TIME : 12 HRS, DURATION : 13 DAYS
     Dates: start: 20210520, end: 20210602

REACTIONS (1)
  - Rash maculo-papular [Recovered/Resolved]

NARRATIVE: CASE EVENT DATE: 20210528
